FAERS Safety Report 6253585-7 (Version None)
Quarter: 2009Q2

REPORT INFORMATION
  Report Type: 
  Country: None (occurrence: None)
  Receive Date: 20090630
  Receipt Date: 20090618
  Transmission Date: 20091009
  Serious: Yes (Disabling)
  Sender: FDA-Public Use
  Company Number: TPA2009A01494

PATIENT
  Age: 49 Year
  Sex: Male
  Weight: 93.8946 kg

DRUGS (6)
  1. ACTOS [Suspect]
     Indication: TYPE 2 DIABETES MELLITUS
     Dosage: 30 MG, 1 IN 1 D, PER ORAL
     Route: 048
  2. LANTUS [Concomitant]
  3. JANUSET (DRUG USED IN DIABETES) [Concomitant]
  4. SIMVASTATIN (SIMVASTATIN) [Concomitant]
  5. ASPIRIN [Concomitant]
  6. MULTIVITAMINS(ERGOCALCIFEROL, ASCORBIC ACID, FOLIC ACID, THIAMINE HYDR [Concomitant]

REACTIONS (4)
  - DEAFNESS [None]
  - DIABETES MELLITUS INADEQUATE CONTROL [None]
  - NEUROPATHY PERIPHERAL [None]
  - WEIGHT INCREASED [None]
